FAERS Safety Report 24240371 (Version 2)
Quarter: 2024Q3

REPORT INFORMATION
  Report Type: Spontaneous
  Country: NL (occurrence: NL)
  Receive Date: 20240822
  Receipt Date: 20240906
  Transmission Date: 20241017
  Serious: Yes (Other)
  Sender: TEVA
  Company Number: NL-TEVA-VS-3234130

PATIENT
  Age: 52 Year
  Sex: Female

DRUGS (17)
  1. LEVOCETIRIZINE [Suspect]
     Active Substance: LEVOCETIRIZINE
     Indication: Anaphylactic shock
     Dosage: PREMEDICATION (ON DAYS OF DESENSITIZATION)
     Route: 065
  2. CARFILZOMIB [Suspect]
     Active Substance: CARFILZOMIB
     Indication: Plasma cell myeloma
     Dosage: AS CONSOLIDATION THERAPY
     Route: 065
  3. CARFILZOMIB [Suspect]
     Active Substance: CARFILZOMIB
     Indication: Plasma cell myeloma
     Dosage: FOUR 28-DAY TREATMENT CYCLES OF INDUCTION THERAPY; (DAYS 1, 8, AND 15)
     Route: 042
  4. MONTELUKAST [Suspect]
     Active Substance: MONTELUKAST SODIUM
     Indication: Anaphylactic shock
     Dosage: PREMEDICATION (ON DAYS OF DESENSITIZATION)
     Route: 065
  5. MELPHALAN [Concomitant]
     Active Substance: MELPHALAN
     Indication: Plasma cell myeloma
     Dosage: HIGH DOSE
     Route: 065
  6. FAMOTIDINE [Suspect]
     Active Substance: FAMOTIDINE
     Indication: Anaphylactic shock
     Dosage: PREMEDICATION (ON DAYS OF DESENSITIZATION)
     Route: 065
  7. DEXAMETHASONE [Suspect]
     Active Substance: DEXAMETHASONE
     Indication: Plasma cell myeloma
     Dosage: NEW TREATMENT CYCLE WITH ISATUXIMAB AND POMALIDOMIDE
     Route: 065
  8. DEXAMETHASONE [Suspect]
     Active Substance: DEXAMETHASONE
     Indication: Plasma cell myeloma
     Dosage: PREMEDICATION (ON DAYS OF DESENSITIZATION)
     Route: 065
  9. DEXAMETHASONE [Suspect]
     Active Substance: DEXAMETHASONE
     Indication: Plasma cell myeloma
     Dosage: AS CONSOLIDATION THERAPY
     Route: 065
  10. DEXAMETHASONE [Suspect]
     Active Substance: DEXAMETHASONE
     Indication: Plasma cell myeloma
     Dosage: FOUR 28-DAY TREATMENT CYCLES OF INDUCTION THERAPY; (DAYS 1, 8, 15, AND 22)
     Route: 065
  11. POMALIDOMIDE [Suspect]
     Active Substance: POMALIDOMIDE
     Indication: Plasma cell myeloma
     Dosage: WITH ISATUXIMAB AND DEXAMETHASONE
     Route: 065
  12. ISATUXIMAB [Suspect]
     Active Substance: ISATUXIMAB
     Indication: Plasma cell myeloma
     Dosage: AS CONSOLIDATION THERAPY; INFUSION
     Route: 065
  13. ISATUXIMAB [Suspect]
     Active Substance: ISATUXIMAB
     Indication: Plasma cell myeloma
     Dosage: A NEW TREATMENT CYCLE WITH POMALIDOMIDE AND DEXAMETHASONE
     Route: 065
  14. ISATUXIMAB [Suspect]
     Active Substance: ISATUXIMAB
     Indication: Plasma cell myeloma
     Dosage: DESENSITIZATION PROCEDURES;  3 IV SOLUTIONS WERE PREPARED AND ISATUXIMAB WAS INCREMENTALLY ADMINI...
     Route: 042
  15. ISATUXIMAB [Suspect]
     Active Substance: ISATUXIMAB
     Indication: Plasma cell myeloma
     Dosage: FOUR 28-DAY TREATMENT CYCLES OF INDUCTION THERAPY: FIRST CYCLE, DAYS 1, 8, 15, 22; CYCLES 2 TO 4,...
     Route: 065
  16. LENALIDOMIDE [Suspect]
     Active Substance: LENALIDOMIDE
     Indication: Plasma cell myeloma
     Dosage: FOUR 28-DAY TREATMENT CYCLES OF INDUCTION THERAPY; DAYS 1-21
     Route: 048
  17. LENALIDOMIDE [Suspect]
     Active Substance: LENALIDOMIDE
     Indication: Plasma cell myeloma
     Dosage: AS CONSOLIDATION THERAPY
     Route: 065

REACTIONS (2)
  - Anaphylactic shock [Recovered/Resolved]
  - Drug ineffective [Unknown]
